FAERS Safety Report 7434935-2 (Version None)
Quarter: 2011Q2

REPORT INFORMATION
  Report Type: 
  Country: None (occurrence: None)
  Receive Date: 20110425
  Receipt Date: 20110419
  Transmission Date: 20111010
  Serious: Yes (Death, Hospitalization)
  Sender: FDA-Public Use
  Company Number: PR-ALEXION-A201100499

PATIENT
  Sex: Male

DRUGS (3)
  1. PROCRIT [Concomitant]
     Dosage: UNK
     Dates: end: 20110110
  2. SOLIRIS [Suspect]
     Dosage: 900 MG, Q12DAYS
     Route: 042
     Dates: start: 20110204, end: 20110321
  3. SOLIRIS [Suspect]
     Indication: PAROXYSMAL NOCTURNAL HAEMOGLOBINURIA
     Dosage: 900 MG, Q15DAYS
     Route: 042
     Dates: start: 20091127, end: 20110101

REACTIONS (3)
  - INTESTINAL OBSTRUCTION [None]
  - CARDIAC DISORDER [None]
  - SEPTIC SHOCK [None]
